FAERS Safety Report 14849356 (Version 2)
Quarter: 2019Q4

REPORT INFORMATION
  Report Type: Report from Study
  Country: GB (occurrence: GB)
  Receive Date: 20180504
  Receipt Date: 20191219
  Transmission Date: 20200122
  Serious: Yes (Other)
  Sender: FDA-Public Use
  Company Number: GB-AMGEN-GBRCT2018059574

PATIENT
  Age: 56 Year
  Sex: Female
  Weight: 66.5 kg

DRUGS (5)
  1. CARFILZOMIB [Suspect]
     Active Substance: CARFILZOMIB
     Indication: PLASMA CELL MYELOMA
     Dosage: 92 MG, PER CHEMO REGIM
     Route: 042
     Dates: start: 20151130
  2. CYCLOPHOSPHAMIDE. [Suspect]
     Active Substance: CYCLOPHOSPHAMIDE
     Indication: PLASMA CELL MYELOMA
     Dosage: UNK UNK, PER CHEMO REGIM
     Route: 065
  3. CARFILZOMIB [Suspect]
     Active Substance: CARFILZOMIB
     Dosage: 20 MG/M2, PER CHEMO REGIM
     Route: 042
     Dates: start: 20180213
  4. CARFILZOMIB [Suspect]
     Active Substance: CARFILZOMIB
     Dosage: 56 MILLIGRAM/SQ. METER, PER CHEMO REGIM
     Route: 042
     Dates: start: 20180220
  5. DEXAMETHASONE. [Suspect]
     Active Substance: DEXAMETHASONE
     Indication: PLASMA CELL MYELOMA
     Dosage: 10 MG, PER CHEMO REGIM
     Route: 065
     Dates: start: 20151130

REACTIONS (1)
  - Hepatitis B reactivation [Recovered/Resolved]

NARRATIVE: CASE EVENT DATE: 20170915
